FAERS Safety Report 8625421-2 (Version None)
Quarter: 2012Q3

REPORT INFORMATION
  Report Type: 
  Country: None (occurrence: None)
  Receive Date: 20120827
  Receipt Date: 20120817
  Transmission Date: 20120928
  Serious: Yes (Other)
  Sender: FDA-Public Use
  Company Number: CHPA2012US018409

PATIENT
  Sex: Female

DRUGS (3)
  1. VICODIN [Concomitant]
     Dosage: UNK
     Dates: start: 20050101
  2. AMBIEN CR [Concomitant]
     Indication: INSOMNIA
     Route: 048
  3. EXCEDRIN EXTRA STRENGTH CAPLETS [Suspect]
     Indication: MIGRAINE
     Dosage: 2 PILLS MAYBE TWICE A WEEK
     Route: 048

REACTIONS (9)
  - FIBROMYALGIA [None]
  - BRACHIAL PLEXOPATHY [None]
  - INJURY [None]
  - HYPOAESTHESIA [None]
  - OVERDOSE [None]
  - INCORRECT DOSE ADMINISTERED [None]
  - MIGRAINE [None]
  - OFF LABEL USE [None]
  - THERAPEUTIC RESPONSE UNEXPECTED [None]
